FAERS Safety Report 7409582-9 (Version None)
Quarter: 2011Q2

REPORT INFORMATION
  Report Type: 
  Country: None (occurrence: None)
  Receive Date: 20110412
  Receipt Date: 20110331
  Transmission Date: 20111010
  Serious: Yes (Hospitalization)
  Sender: FDA-Public Use
  Company Number: PHHY2011JP26971

PATIENT
  Sex: Male
  Weight: 64 kg

DRUGS (10)
  1. ADALAT CC [Concomitant]
     Indication: HYPERTENSION
     Dosage: 80 MG, UNK
  2. OLMETEC [Concomitant]
     Indication: HYPERTENSION
     Dosage: 40 MG, UNK
  3. ALISKIREN [Suspect]
     Dosage: 300 MG, UNK
     Route: 048
     Dates: start: 20110110
  4. ALISKIREN [Suspect]
     Dosage: 150 MG, UNK
     Route: 048
     Dates: start: 20100315, end: 20110109
  5. FOSRENOL [Concomitant]
     Dosage: 1000 MG, UNK
  6. PLETAL [Concomitant]
     Dosage: 100 MG, UNK
  7. ARTIST [Concomitant]
     Indication: HYPERTENSION
     Dosage: 10 MG, UNK
  8. LIVALO KOWA [Concomitant]
     Dosage: 1 MG, UNK
  9. ALOSENN [Concomitant]
  10. PARIET [Concomitant]
     Indication: HYPERTENSION
     Dosage: 10 MG, UNK

REACTIONS (1)
  - BRAIN STEM INFARCTION [None]
